FAERS Safety Report 19418014 (Version 1)
Quarter: 2021Q2

REPORT INFORMATION
  Report Type: Spontaneous
  Country: NL (occurrence: NL)
  Receive Date: 20210615
  Receipt Date: 20210615
  Transmission Date: 20210717
  Serious: Yes (Hospitalization)
  Sender: FDA-Public Use
  Company Number: NL-TEVA-2021-NL-1921369

PATIENT
  Age: 55 Year
  Sex: Female
  Weight: 75 kg

DRUGS (6)
  1. METOCLOPRAMIDE TABLET 10MG / BRAND NAME NOT SPECIFIED [Concomitant]
     Active Substance: METOCLOPRAMIDE
     Dosage: 10 MG (MILLIGRAM),THERAPY START DATE :ASKU,THERAPY END DATE :ASKU
  2. ETOPOSIDE INFUUS / BRAND NAME NOT SPECIFIED [Suspect]
     Active Substance: ETOPOSIDE
     Indication: LUNG NEOPLASM MALIGNANT
     Dosage: 190 MILLIGRAM DAILY;   (ON 12?5?2021 AND 13?5?2021)THERAPY END DATE :ASKU
     Dates: start: 20210513
  3. OMEPRAZOL CAPSULE MSR 20MG / BRAND NAME NOT SPECIFIED [Concomitant]
     Active Substance: OMEPRAZOLE
     Dosage: 20 MG (MILLIGRAM),THERAPY START DATE :ASKU,THERAPY END DATE :ASKU
  4. CISPLATINE INFUUS / BRAND NAME NOT SPECIFIED [Suspect]
     Active Substance: CISPLATIN
     Indication: LUNG NEOPLASM MALIGNANT
     Dosage: 145 MILLIGRAM DAILY;  THERAPY END DATE :ASKU
     Dates: start: 20210511
  5. DEXAMETHASON TABLET  4MG / BRAND NAME NOT SPECIFIED [Concomitant]
     Dosage: 4 MG (MILLIGRAM),THERAPY START DATE :ASKU,THERAPY END DATE :ASKU
  6. APREPITANT CAPSULE 125+80MG (COMBIVERPAKKING) / BRAND NAME NOT SPECIFI [Concomitant]
     Dosage: UNIT DOSE :1 DOSAGE FORMS ,125+80 MG (MILLIGRAM),THERAPY START DATE :ASKU,THERAPY END DATE :ASKU

REACTIONS (2)
  - Peripheral artery thrombosis [Not Recovered/Not Resolved]
  - Aortic thrombosis [Not Recovered/Not Resolved]

NARRATIVE: CASE EVENT DATE: 20210515
